FAERS Safety Report 21006656 (Version 9)
Quarter: 2023Q4

REPORT INFORMATION
  Report Type: Report from Study
  Country: US (occurrence: US)
  Receive Date: 20220625
  Receipt Date: 20231010
  Transmission Date: 20240110
  Serious: No
  Sender: FDA-Public Use
  Company Number: US-NOVARTISTESTPH-NVSC2022US145077

PATIENT
  Sex: Female

DRUGS (4)
  1. SANDOSTATIN LAR DEPOT [Suspect]
     Active Substance: OCTREOTIDE ACETATE
     Indication: Gastrointestinal vascular malformation haemorrhagic
     Dosage: 20 MG, QMO
     Route: 030
     Dates: start: 20220617
  2. SANDOSTATIN LAR DEPOT [Suspect]
     Active Substance: OCTREOTIDE ACETATE
     Dosage: 20 MG, QMO
     Route: 030
     Dates: start: 202206
  3. SANDOSTATIN LAR DEPOT [Suspect]
     Active Substance: OCTREOTIDE ACETATE
  4. SANDOSTATIN LAR DEPOT [Suspect]
     Active Substance: OCTREOTIDE ACETATE
     Indication: Product used for unknown indication
     Dosage: UNK
     Route: 065

REACTIONS (9)
  - Diarrhoea [Recovered/Resolved]
  - Back pain [Recovered/Resolved]
  - Contusion [Not Recovered/Not Resolved]
  - Malaise [Unknown]
  - Cholelithiasis [Unknown]
  - COVID-19 [Unknown]
  - Product dose omission issue [Unknown]
  - Drug ineffective [Not Recovered/Not Resolved]
  - Product use in unapproved indication [Unknown]
